APPROVED DRUG PRODUCT: EYSUVIS
Active Ingredient: LOTEPREDNOL ETABONATE
Strength: 0.25%
Dosage Form/Route: SUSPENSION/DROPS;OPHTHALMIC
Application: N210933 | Product #001
Applicant: ALCON LABORATORIES INC
Approved: Oct 26, 2020 | RLD: Yes | RS: Yes | Type: RX

PATENTS:
Patent 11219596 | Expires: May 3, 2033
Patent 11596599 | Expires: May 3, 2033
Patent 10857096 | Expires: May 3, 2033
Patent 10945948 | Expires: May 3, 2033
Patent 10940108 | Expires: May 3, 2033
Patent 9532955 | Expires: May 3, 2033
Patent 9737491 | Expires: May 3, 2033
Patent 9056057 | Expires: May 3, 2033
Patent 9827191 | Expires: May 3, 2033
Patent 10058511 | Expires: May 3, 2033
Patent 10993908 | Expires: May 3, 2033
Patent 12115246 | Expires: May 3, 2033
Patent 11642317 | Expires: May 3, 2033
Patent 10688045 | Expires: May 3, 2033
Patent 10646436 | Expires: May 3, 2033
Patent 9393213 | Expires: May 3, 2033
Patent 11872318 | Expires: May 3, 2033